FAERS Safety Report 7706895-8 (Version None)
Quarter: 2011Q3

REPORT INFORMATION
  Report Type: 
  Country: None (occurrence: None)
  Receive Date: 20110824
  Receipt Date: 20110816
  Transmission Date: 20111222
  Serious: Yes (Other)
  Sender: FDA-Public Use
  Company Number: US-GLAXOSMITHKLINE-A0928564A

PATIENT
  Age: 49 Year
  Sex: Female

DRUGS (7)
  1. BUPROPION HYDROCHLORIDE [Suspect]
     Indication: DEPRESSION
     Dosage: 100MG THREE TIMES PER DAY
     Route: 048
     Dates: start: 20110501
  2. STOOL SOFTENERS [Concomitant]
  3. MOTRIN [Concomitant]
  4. TOPAMAX [Concomitant]
  5. CLONAZEPAM [Concomitant]
     Indication: ANXIETY
     Dosage: .5MG VARIABLE DOSE
     Route: 048
  6. GEODON [Concomitant]
     Indication: BIPOLAR DISORDER
     Dosage: 80MG VARIABLE DOSE
     Route: 048
  7. CYMBALTA [Concomitant]
     Indication: DEPRESSION
     Dosage: 120MG IN THE MORNING
     Route: 048

REACTIONS (6)
  - DYSPHORIA [None]
  - MEDICATION ERROR [None]
  - HALLUCINATION [None]
  - DEPRESSION [None]
  - TEARFULNESS [None]
  - DRUG INEFFECTIVE [None]
